FAERS Safety Report 5532526-1 (Version None)
Quarter: 2007Q4

REPORT INFORMATION
  Report Type: 
  Country: None (occurrence: None)
  Receive Date: 20071203
  Receipt Date: 20071121
  Transmission Date: 20080405
  Serious: Yes (Other)
  Sender: FDA-Public Use
  Company Number: US-PFIZER INC-2007099851

PATIENT
  Sex: Male
  Weight: 86.363 kg

DRUGS (3)
  1. CHANTIX [Suspect]
     Indication: SMOKING CESSATION THERAPY
  2. ALCOHOL [Interacting]
     Dates: start: 20071120, end: 20071120
  3. NICORETTE [Concomitant]

REACTIONS (6)
  - ALCOHOL INTERACTION [None]
  - DEMENTIA [None]
  - DIZZINESS [None]
  - DRUG INTERACTION [None]
  - MEMORY IMPAIRMENT [None]
  - POISONING [None]
